FAERS Safety Report 7952300-6 (Version None)
Quarter: 2011Q4

REPORT INFORMATION
  Report Type: 
  Country: None (occurrence: None)
  Receive Date: 20111201
  Receipt Date: 20111128
  Transmission Date: 20120403
  Serious: Yes (Hospitalization)
  Sender: FDA-Public Use
  Company Number: FR-PFIZER INC-2011275169

PATIENT
  Age: 76 Year
  Sex: Female

DRUGS (11)
  1. ACETAMINOPHEN AND TRAMADOL HCL [Suspect]
     Dosage: 37,5 MG/350MG TABLET
     Route: 048
     Dates: start: 20101202, end: 20101206
  2. LYRICA [Suspect]
     Dosage: UNK
     Route: 048
     Dates: start: 20090601, end: 20101206
  3. TANAKAN [Concomitant]
     Dosage: UNK
     Route: 048
     Dates: start: 20090601, end: 20101206
  4. CELEBREX [Concomitant]
     Dosage: UNK
     Dates: start: 20100701
  5. OMEPRAZOLE [Suspect]
     Dosage: UNK
     Route: 048
     Dates: start: 20101202, end: 20101206
  6. CARTREX [Concomitant]
     Dosage: UNK
     Route: 048
     Dates: start: 20101202, end: 20101206
  7. ALENDRONATE SODIUM [Concomitant]
     Dosage: UNK
     Route: 048
     Dates: start: 20090601, end: 20101206
  8. CHONDROSULF [Concomitant]
     Dosage: UNK
     Route: 048
     Dates: start: 20090601, end: 20101206
  9. OROCAL D3 [Concomitant]
     Dosage: UNK
     Route: 048
     Dates: start: 20090601, end: 20101206
  10. CIRCADIN [Concomitant]
     Dosage: 2 MG, UNK
     Route: 048
     Dates: start: 20090601, end: 20101206
  11. TRAMADOL HYDROCHLORIDE AND ACETAMINOPHEN [Concomitant]
     Dosage: UNK
     Dates: start: 20100701

REACTIONS (4)
  - FALL [None]
  - HYPONATRAEMIA [None]
  - CONFUSIONAL STATE [None]
  - DEPRESSED LEVEL OF CONSCIOUSNESS [None]
